FAERS Safety Report 16161473 (Version 1)
Quarter: 2019Q2

REPORT INFORMATION
  Report Type: Report from Study
  Country: None (occurrence: US)
  Receive Date: 20190405
  Receipt Date: 20190405
  Transmission Date: 20190711
  Serious: Yes (Other)
  Sender: FDA-Public Use
  Company Number: US-ABBVIE-18K-163-2237049-00

PATIENT
  Age: 29 Year
  Sex: Female

DRUGS (3)
  1. HUMIRA [Suspect]
     Active Substance: ADALIMUMAB
     Indication: UVEITIS
     Route: 058
     Dates: start: 201711, end: 2018
  2. TAMIFLU [Suspect]
     Active Substance: OSELTAMIVIR PHOSPHATE
     Indication: INFLUENZA
     Route: 065
     Dates: start: 2018
  3. HUMIRA [Suspect]
     Active Substance: ADALIMUMAB
     Route: 058
     Dates: start: 2018

REACTIONS (20)
  - Skin burning sensation [Unknown]
  - Ocular discomfort [Not Recovered/Not Resolved]
  - Middle ear effusion [Unknown]
  - Headache [Recovered/Resolved]
  - Eyelid ptosis [Unknown]
  - Eye pain [Recovered/Resolved]
  - Mass [Not Recovered/Not Resolved]
  - Malaise [Unknown]
  - Therapeutic response shortened [Not Recovered/Not Resolved]
  - Dermatitis contact [Unknown]
  - Aneurysm [Unknown]
  - Bronchitis [Recovered/Resolved]
  - Influenza [Recovered/Resolved]
  - Muscle rupture [Recovering/Resolving]
  - Umbilical hernia [Not Recovered/Not Resolved]
  - Post procedural complication [Unknown]
  - Cataract [Not Recovered/Not Resolved]
  - Eye pain [Recovering/Resolving]
  - Wisdom teeth removal [Unknown]
  - Ear infection [Recovered/Resolved]

NARRATIVE: CASE EVENT DATE: 2018
